FAERS Safety Report 18676498 (Version 1)
Quarter: 2020Q4

REPORT INFORMATION
  Report Type: Spontaneous
  Country: CA (occurrence: RU)
  Receive Date: 20201229
  Receipt Date: 20201229
  Transmission Date: 20210114
  Serious: Yes (Other)
  Sender: FDA-Public Use
  Company Number: CA-BAYER-2020-280783

PATIENT
  Age: 54 Year
  Sex: Female

DRUGS (1)
  1. MIRENA [Suspect]
     Active Substance: LEVONORGESTREL
     Indication: DEVICE USE ISSUE
     Dosage: 20 ?G PER DAY, CONTINUOUSLY
     Route: 015
     Dates: start: 201811, end: 202010

REACTIONS (4)
  - Serous cystadenocarcinoma ovary [None]
  - Off label use of device [None]
  - Device use issue [None]
  - Ovarian mass [None]

NARRATIVE: CASE EVENT DATE: 202009
